FAERS Safety Report 7076469-3 (Version None)
Quarter: 2010Q4

REPORT INFORMATION
  Report Type: 
  Country: None (occurrence: None)
  Receive Date: 20101101
  Receipt Date: 20101021
  Transmission Date: 20110411
  Serious: Yes (Hospitalization)
  Sender: FDA-Public Use
  Company Number: CA-JNJFOC-20100404608

PATIENT
  Sex: Male
  Weight: 109 kg

DRUGS (4)
  1. REMICADE [Suspect]
     Indication: PSORIATIC ARTHROPATHY
     Route: 042
  2. REMICADE [Suspect]
     Dosage: 3 INFUSIONS
     Route: 042
  3. REMICADE [Suspect]
     Route: 042
  4. INDOMETHACIN [Concomitant]

REACTIONS (4)
  - CYSTITIS [None]
  - HAEMORRHAGE [None]
  - KIDNEY INFECTION [None]
  - NEPHROLITHIASIS [None]
